FAERS Safety Report 7005441-4 (Version None)
Quarter: 2010Q3

REPORT INFORMATION
  Report Type: 
  Country: None (occurrence: None)
  Receive Date: 20100921
  Receipt Date: 20100909
  Transmission Date: 20110219
  Serious: Yes (Hospitalization)
  Sender: FDA-Public Use
  Company Number: SE-ROCHE-724930

PATIENT
  Age: 70 Year
  Sex: Male

DRUGS (2)
  1. ROACTEMRA [Suspect]
     Indication: RHEUMATOID ARTHRITIS
     Dosage: FORM: CONCENTRATE FOR SOLUTION FOR INFUSION. STRENGTH: 20 MG/ML
     Route: 042
     Dates: start: 20100415
  2. PREDNISOLON [Suspect]
     Indication: RHEUMATOID ARTHRITIS
     Dosage: FREQUENCY: DAILY
     Route: 048
     Dates: start: 20100415

REACTIONS (1)
  - MYOCARDIAL INFARCTION [None]
